FAERS Safety Report 7541703-X (Version None)
Quarter: 2011Q2

REPORT INFORMATION
  Report Type: 
  Country: None (occurrence: None)
  Receive Date: 20110613
  Receipt Date: 20110608
  Transmission Date: 20111010
  Serious: Yes (Death, Life-Threatening)
  Sender: FDA-Public Use
  Company Number: GB-TEVA-285467ISR

PATIENT
  Sex: Male

DRUGS (1)
  1. GABAPENTIN [Suspect]

REACTIONS (1)
  - DRUG ABUSE [None]
